FAERS Safety Report 17797064 (Version 2)
Quarter: 2020Q3

REPORT INFORMATION
  Report Type: Report from Study
  Country: US (occurrence: US)
  Receive Date: 20200518
  Receipt Date: 20200714
  Transmission Date: 20201102
  Serious: No
  Sender: FDA-Public Use
  Company Number: NVSC2020US134302

PATIENT
  Sex: Female

DRUGS (1)
  1. COSENTYX [Suspect]
     Active Substance: SECUKINUMAB
     Indication: PSORIASIS
     Dosage: 300 MG, QW (QW X 5 WEEKS THEN 300MG Q 4 WEEKS)
     Route: 058
     Dates: start: 20190308

REACTIONS (2)
  - Post procedural inflammation [Unknown]
  - Hypersensitivity [Unknown]
